FAERS Safety Report 6035070-0 (Version None)
Quarter: 2009Q1

REPORT INFORMATION
  Report Type: 
  Country: None (occurrence: None)
  Receive Date: 20090112
  Receipt Date: 20090106
  Transmission Date: 20090719
  Serious: Yes (Other)
  Sender: FDA-Public Use
  Company Number: US-PFIZER INC-2008087473

PATIENT
  Sex: Female
  Weight: 50 kg

DRUGS (1)
  1. CHANTIX [Suspect]
     Dates: start: 20080922, end: 20081001

REACTIONS (6)
  - ABDOMINAL DISCOMFORT [None]
  - DECREASED APPETITE [None]
  - DRUG INEFFECTIVE [None]
  - MALAISE [None]
  - PNEUMONIA [None]
  - WEIGHT DECREASED [None]
